FAERS Safety Report 9158083 (Version 1)
Quarter: 2013Q1

REPORT INFORMATION
  Report Type: Report from Study
  Country: IT (occurrence: IT)
  Receive Date: 20130312
  Receipt Date: 20130312
  Transmission Date: 20140127
  Serious: Yes (Hospitalization)
  Sender: FDA-Public Use
  Company Number: IT-ROCHE-1200412

PATIENT
  Age: 80 Year
  Sex: Male
  Weight: 75 kg

DRUGS (3)
  1. VEMURAFENIB [Suspect]
     Indication: HAIRY CELL LEUKAEMIA
     Dosage: DATE OF LAST DOSE; 02/MAR/2013
     Route: 048
     Dates: start: 20130218, end: 20130303
  2. SEQUACOR [Concomitant]
     Indication: ANGINA UNSTABLE
     Route: 065
     Dates: start: 20130126
  3. CARDIOASPIRIN [Concomitant]
     Route: 065

REACTIONS (2)
  - Acute myocardial infarction [Not Recovered/Not Resolved]
  - Angina unstable [Not Recovered/Not Resolved]
